FAERS Safety Report 4350010-8 (Version None)
Quarter: 2004Q2

REPORT INFORMATION
  Report Type: 
  Country: None (occurrence: None)
  Receive Date: 20040428
  Receipt Date: 20040428
  Transmission Date: 20050107
  Serious: Yes (Hospitalization)
  Sender: FDA-Public Use
  Company Number: None

PATIENT
  Sex: Male

DRUGS (13)
  1. NOVOLIN 70/30 [Suspect]
     Indication: DIABETES MELLITUS
     Dosage: 60/40 UNITS AM/PM SUBCUTANEOUS
     Route: 058
  2. NOVOLIN R [Suspect]
     Indication: DIABETES MELLITUS
     Dosage: SLIDING SCAL PRN SUBCUTANEOUS
     Route: 058
  3. OXYCODONE [Concomitant]
  4. OMEPRAZOLE [Concomitant]
  5. LACTULOSE [Concomitant]
  6. COMBIVENT [Concomitant]
  7. SIMVASTATIN [Concomitant]
  8. SENNA [Concomitant]
  9. DOCUSATE [Concomitant]
  10. METOPROLOL [Concomitant]
  11. FUROSEMIDE [Concomitant]
  12. FERROUS SULFATE TAB [Concomitant]
  13. ASPIRIN [Concomitant]

REACTIONS (5)
  - AGITATION [None]
  - COMA [None]
  - MARKEDLY REDUCED DIETARY INTAKE [None]
  - NAUSEA [None]
  - VOMITING [None]
